FAERS Safety Report 14161783 (Version 2)
Quarter: 2018Q3

REPORT INFORMATION
  Report Type: Spontaneous
  Country: US (occurrence: US)
  Receive Date: 20171106
  Receipt Date: 20180928
  Transmission Date: 20181010
  Serious: Yes (Death, Other)
  Sender: FDA-Public Use
  Company Number: US-PFIZER INC-2017476922

PATIENT
  Age: 62 Year
  Sex: Female
  Weight: 64 kg

DRUGS (1)
  1. EFFEXOR XR [Suspect]
     Active Substance: VENLAFAXINE HYDROCHLORIDE
     Indication: BIPOLAR DISORDER
     Dosage: UNK

REACTIONS (6)
  - Completed suicide [Fatal]
  - Product use in unapproved indication [Unknown]
  - Condition aggravated [Unknown]
  - Depression [Unknown]
  - Bipolar disorder [Unknown]
  - Carbon monoxide poisoning [Fatal]

NARRATIVE: CASE EVENT DATE: 20171004
